FAERS Safety Report 17953485 (Version 2)
Quarter: 2022Q1

REPORT INFORMATION
  Report Type: Spontaneous
  Country: US (occurrence: MX)
  Receive Date: 20200628
  Receipt Date: 20220209
  Transmission Date: 20220423
  Serious: No
  Sender: FDA-Public Use
  Company Number: US-JNJFOC-20200234314

PATIENT
  Age: 56 Year
  Sex: Female
  Weight: 102.15 kg

DRUGS (6)
  1. NEUTROGENA ULTRA SHEER DRY TOUCH SUNSCREEN BROAD SPECTRUM SPF85 PLUS [Suspect]
     Active Substance: AVOBENZONE\HOMOSALATE\OCTISALATE\OCTOCRYLENE\OXYBENZONE
     Indication: Product used for unknown indication
     Dosage: QUARTER SIZE
     Route: 061
     Dates: start: 20200208, end: 20200214
  2. DESOXIMETASONE [Concomitant]
     Active Substance: DESOXIMETASONE
     Indication: Eczema
     Dosage: APPLY A THIN LAYER TO AFFECTED AREA ONCE DAILY
     Route: 061
  3. PANTOPRAZOLE [Concomitant]
     Active Substance: PANTOPRAZOLE
     Indication: Product used for unknown indication
     Route: 048
  4. SUMATRIPTAN [Concomitant]
     Active Substance: SUMATRIPTAN
     Indication: Migraine
     Dosage: TAKE 1 TABLET BY MOUTH AS NEEDED FOR MIGRAINE. TAKE 1 TABLET BY MOUTH AT ONSET OF MIGRAINE. MAY REPE
     Route: 048
  5. ERGOCALCIFEROL [Concomitant]
     Active Substance: ERGOCALCIFEROL
     Indication: Product used for unknown indication
     Route: 048
  6. EPINEPHRINE                        /00003903/ [Concomitant]
     Indication: Anaphylactic reaction
     Dosage: INJECT 0.3 MLS INTO THE MUSCLE 1 TIME AS NEEDED
     Route: 030

REACTIONS (2)
  - Dermatitis allergic [Recovered/Resolved]
  - Oral herpes [Unknown]

NARRATIVE: CASE EVENT DATE: 20200201
